FAERS Safety Report 13810457 (Version 2)
Quarter: 2017Q3

REPORT INFORMATION
  Report Type: Not Available
  Country: None (occurrence: US)
  Receive Date: 20170728
  Receipt Date: 20170728
  Transmission Date: 20171127
  Serious: No
  Sender: FDA-Public Use
  Company Number: US-AKORN-58428

PATIENT
  Sex: Female

DRUGS (1)
  1. ATROPINE SULFATE 1% OPHTHALMIC SOLUTION, USP [Suspect]
     Active Substance: ATROPINE SULFATE

REACTIONS (2)
  - Drug ineffective for unapproved indication [Recovered/Resolved]
  - Product measured potency issue [Recovered/Resolved]
